FAERS Safety Report 4752347-7 (Version None)
Quarter: 2005Q3

REPORT INFORMATION
  Report Type: 
  Country: None (occurrence: None)
  Receive Date: 20050825
  Receipt Date: 20050812
  Transmission Date: 20060218
  Serious: Yes (Other)
  Sender: FDA-Public Use
  Company Number: DE-GLAXOSMITHKLINE-D0047281A

PATIENT
  Age: 18 Year
  Sex: Female
  Weight: 90 kg

DRUGS (2)
  1. LAMICTAL [Suspect]
     Dosage: 100MG THREE TIMES PER DAY
     Route: 048
  2. ANTI-EPILEPTIC DRUG [Concomitant]

REACTIONS (5)
  - ANGIONEUROTIC OEDEMA [None]
  - DISTURBANCE IN ATTENTION [None]
  - HEADACHE [None]
  - OVERWEIGHT [None]
  - RASH [None]
